FAERS Safety Report 22982725 (Version 2)
Quarter: 2025Q3

REPORT INFORMATION
  Report Type: Spontaneous
  Country: CA (occurrence: CA)
  Receive Date: 20230926
  Receipt Date: 20250901
  Transmission Date: 20251021
  Serious: Yes (Death, Congenital Anomaly, Other)
  Sender: SANDOZ
  Company Number: CA-002147023-NVSC2022CA093732

PATIENT

DRUGS (256)
  1. ACETAMINOPHEN [Suspect]
     Active Substance: ACETAMINOPHEN
     Indication: Foetal exposure during pregnancy
     Route: 064
  2. ACETAMINOPHEN [Suspect]
     Active Substance: ACETAMINOPHEN
     Route: 064
  3. ACETAMINOPHEN [Suspect]
     Active Substance: ACETAMINOPHEN
     Route: 064
  4. ADALIMUMAB [Suspect]
     Active Substance: ADALIMUMAB
     Indication: Foetal exposure during pregnancy
     Route: 064
  5. ADALIMUMAB [Suspect]
     Active Substance: ADALIMUMAB
     Indication: Foetal exposure during pregnancy
     Route: 064
  6. ALENDRONIC ACID [Suspect]
     Active Substance: ALENDRONIC ACID
     Indication: Foetal exposure during pregnancy
     Route: 064
  7. ALENDRONIC ACID [Suspect]
     Active Substance: ALENDRONIC ACID
     Indication: Foetal exposure during pregnancy
  8. AZATHIOPRINE [Suspect]
     Active Substance: AZATHIOPRINE
     Indication: Foetal exposure during pregnancy
     Route: 064
  9. ACTEMRA [Suspect]
     Active Substance: TOCILIZUMAB
     Route: 064
  10. ACTEMRA [Suspect]
     Active Substance: TOCILIZUMAB
     Route: 064
  11. ACTEMRA [Suspect]
     Active Substance: TOCILIZUMAB
     Route: 064
  12. ACTEMRA [Suspect]
     Active Substance: TOCILIZUMAB
     Route: 064
  13. ACTEMRA [Suspect]
     Active Substance: TOCILIZUMAB
     Route: 064
  14. ACTEMRA [Suspect]
     Active Substance: TOCILIZUMAB
     Indication: Foetal exposure during pregnancy
     Route: 064
  15. ACTEMRA [Suspect]
     Active Substance: TOCILIZUMAB
     Route: 064
  16. ACTEMRA [Suspect]
     Active Substance: TOCILIZUMAB
     Route: 064
  17. ALENDRONATE SODIUM [Suspect]
     Active Substance: ALENDRONATE SODIUM
     Indication: Foetal exposure during pregnancy
     Route: 064
  18. ALENDRONATE SODIUM [Suspect]
     Active Substance: ALENDRONATE SODIUM
     Route: 064
  19. ALENDRONATE SODIUM [Suspect]
     Active Substance: ALENDRONATE SODIUM
     Route: 064
  20. ALENDRONATE SODIUM [Suspect]
     Active Substance: ALENDRONATE SODIUM
     Route: 064
  21. PREDNISONE [Suspect]
     Active Substance: PREDNISONE
     Route: 064
  22. PREDNISONE [Suspect]
     Active Substance: PREDNISONE
     Route: 064
  23. PREDNISONE [Suspect]
     Active Substance: PREDNISONE
     Indication: Foetal exposure during pregnancy
     Route: 064
  24. ARAVA [Suspect]
     Active Substance: LEFLUNOMIDE
     Route: 064
  25. ARAVA [Suspect]
     Active Substance: LEFLUNOMIDE
     Route: 064
  26. ARAVA [Suspect]
     Active Substance: LEFLUNOMIDE
     Indication: Foetal exposure during pregnancy
     Route: 064
  27. CALCIUM CARBONATE [Suspect]
     Active Substance: CALCIUM CARBONATE
     Indication: Foetal exposure during pregnancy
     Route: 064
  28. CALCIUM CARBONATE [Suspect]
     Active Substance: CALCIUM CARBONATE
     Indication: Foetal exposure during pregnancy
     Route: 064
  29. CALCIUM CARBONATE [Suspect]
     Active Substance: CALCIUM CARBONATE
     Route: 064
  30. CETIRIZINE [Suspect]
     Active Substance: CETIRIZINE HYDROCHLORIDE
     Indication: Foetal exposure during pregnancy
     Route: 064
  31. CETIRIZINE [Suspect]
     Active Substance: CETIRIZINE HYDROCHLORIDE
     Indication: Foetal exposure during pregnancy
  32. CALCIUM GLUBIONATE [Suspect]
     Active Substance: CALCIUM GLUBIONATE
     Indication: Foetal exposure during pregnancy
     Route: 064
  33. CERTOLIZUMAB PEGOL [Suspect]
     Active Substance: CERTOLIZUMAB PEGOL
     Indication: Foetal exposure during pregnancy
     Route: 064
  34. CETIRIZINE HYDROCHLORIDE [Suspect]
     Active Substance: CETIRIZINE HYDROCHLORIDE
     Indication: Foetal exposure during pregnancy
     Route: 064
  35. CETIRIZINE HYDROCHLORIDE [Suspect]
     Active Substance: CETIRIZINE HYDROCHLORIDE
     Route: 064
  36. CETIRIZINE HYDROCHLORIDE [Suspect]
     Active Substance: CETIRIZINE HYDROCHLORIDE
     Route: 064
  37. CETIRIZINE HYDROCHLORIDE [Suspect]
     Active Substance: CETIRIZINE HYDROCHLORIDE
     Route: 064
  38. CETIRIZINE HYDROCHLORIDE [Suspect]
     Active Substance: CETIRIZINE HYDROCHLORIDE
     Route: 064
  39. CIMZIA [Suspect]
     Active Substance: CERTOLIZUMAB PEGOL
     Dosage: MATERNAL EXPOSURE DURING PREGNANCY:  200 MG, Q2W
     Route: 064
  40. CIMZIA [Suspect]
     Active Substance: CERTOLIZUMAB PEGOL
     Indication: Foetal exposure during pregnancy
     Route: 064
  41. CIMZIA [Suspect]
     Active Substance: CERTOLIZUMAB PEGOL
     Route: 064
  42. CIMZIA [Suspect]
     Active Substance: CERTOLIZUMAB PEGOL
     Route: 064
  43. CIMZIA [Suspect]
     Active Substance: CERTOLIZUMAB PEGOL
     Route: 064
  44. CIMZIA [Suspect]
     Active Substance: CERTOLIZUMAB PEGOL
     Route: 064
  45. CIMZIA [Suspect]
     Active Substance: CERTOLIZUMAB PEGOL
     Route: 064
  46. CORTISONE ACETATE [Suspect]
     Active Substance: CORTISONE ACETATE
     Indication: Foetal exposure during pregnancy
     Route: 064
  47. CORTISONE ACETATE [Suspect]
     Active Substance: CORTISONE ACETATE
     Route: 064
  48. COSENTYX [Suspect]
     Active Substance: SECUKINUMAB
     Indication: Foetal exposure during pregnancy
     Route: 064
  49. DEXAMETHASONE [Suspect]
     Active Substance: DEXAMETHASONE
     Indication: Foetal exposure during pregnancy
     Route: 064
  50. DEXAMETHASONE [Suspect]
     Active Substance: DEXAMETHASONE
     Indication: Foetal exposure during pregnancy
  51. DICLOFENAC [Suspect]
     Active Substance: DICLOFENAC
     Indication: Foetal exposure during pregnancy
     Route: 064
  52. DICLOFENAC [Suspect]
     Active Substance: DICLOFENAC
     Route: 064
  53. DICLOFENAC [Suspect]
     Active Substance: DICLOFENAC
     Route: 064
  54. DICLOFENAC [Suspect]
     Active Substance: DICLOFENAC
     Route: 064
  55. DICLOFENAC SODIUM [Suspect]
     Active Substance: DICLOFENAC SODIUM
     Indication: Foetal exposure during pregnancy
     Route: 064
  56. DICLOFENAC SODIUM [Suspect]
     Active Substance: DICLOFENAC SODIUM
     Indication: Foetal exposure during pregnancy
  57. DIPHENHYDRAMINE [Suspect]
     Active Substance: DIPHENHYDRAMINE
     Indication: Foetal exposure during pregnancy
     Route: 064
  58. DIPHENHYDRAMINE [Suspect]
     Active Substance: DIPHENHYDRAMINE
     Indication: Foetal exposure during pregnancy
  59. DIPHENHYDRAMINE HYDROCHLORIDE [Suspect]
     Active Substance: DIPHENHYDRAMINE HYDROCHLORIDE
     Indication: Foetal exposure during pregnancy
     Route: 064
  60. DIPHENHYDRAMINE HYDROCHLORIDE [Suspect]
     Active Substance: DIPHENHYDRAMINE HYDROCHLORIDE
     Indication: Foetal exposure during pregnancy
     Route: 064
  61. DESOXIMETASONE [Suspect]
     Active Substance: DESOXIMETASONE
     Indication: Foetal exposure during pregnancy
     Route: 064
  62. DESOXIMETASONE [Suspect]
     Active Substance: DESOXIMETASONE
     Indication: Foetal exposure during pregnancy
     Route: 064
  63. DESOXIMETASONE [Suspect]
     Active Substance: DESOXIMETASONE
     Route: 064
  64. DESOXIMETASONE [Suspect]
     Active Substance: DESOXIMETASONE
     Route: 064
  65. DESOXIMETASONE [Suspect]
     Active Substance: DESOXIMETASONE
     Route: 064
  66. DESOXIMETASONE [Suspect]
     Active Substance: DESOXIMETASONE
     Route: 064
  67. DESOXIMETASONE [Suspect]
     Active Substance: DESOXIMETASONE
     Route: 064
  68. DESOXIMETASONE [Suspect]
     Active Substance: DESOXIMETASONE
     Route: 064
  69. DESOXIMETASONE [Suspect]
     Active Substance: DESOXIMETASONE
     Route: 064
  70. DESOXIMETASONE [Suspect]
     Active Substance: DESOXIMETASONE
     Route: 064
  71. DESOXIMETASONE [Suspect]
     Active Substance: DESOXIMETASONE
     Route: 064
  72. DESOXIMETASONE [Suspect]
     Active Substance: DESOXIMETASONE
     Route: 064
  73. DESOXIMETASONE [Suspect]
     Active Substance: DESOXIMETASONE
     Route: 064
  74. DESOXIMETASONE [Suspect]
     Active Substance: DESOXIMETASONE
     Route: 064
  75. DESOXIMETASONE [Suspect]
     Active Substance: DESOXIMETASONE
     Route: 064
  76. DESOXIMETASONE [Suspect]
     Active Substance: DESOXIMETASONE
     Route: 064
  77. DESOXIMETASONE [Suspect]
     Active Substance: DESOXIMETASONE
     Route: 064
  78. DESOXIMETASONE [Suspect]
     Active Substance: DESOXIMETASONE
     Route: 064
  79. DESOXIMETASONE [Suspect]
     Active Substance: DESOXIMETASONE
     Route: 064
  80. ERELZI [Suspect]
     Active Substance: ETANERCEPT-SZZS
     Indication: Foetal exposure during pregnancy
     Route: 064
  81. ERELZI [Suspect]
     Active Substance: ETANERCEPT-SZZS
     Indication: Foetal exposure during pregnancy
  82. ENBREL [Suspect]
     Active Substance: ETANERCEPT
     Dosage: MATERNAL EXPOSURE DURING PREGNANCY: 10  MG, QW
     Route: 064
  83. ENBREL [Suspect]
     Active Substance: ETANERCEPT
     Indication: Foetal exposure during pregnancy
     Route: 064
  84. ENBREL [Suspect]
     Active Substance: ETANERCEPT
     Dosage: MATERNAL EXPOSURE DURING PREGNANCY: 50  MG, QW
     Route: 064
  85. ENBREL [Suspect]
     Active Substance: ETANERCEPT
     Route: 064
  86. FOLIC ACID [Suspect]
     Active Substance: FOLIC ACID
     Indication: Foetal exposure during pregnancy
     Route: 064
  87. FOLIC ACID [Suspect]
     Active Substance: FOLIC ACID
     Indication: Foetal exposure during pregnancy
     Route: 064
  88. FOLIC ACID [Suspect]
     Active Substance: FOLIC ACID
     Route: 064
  89. FOLIC ACID [Suspect]
     Active Substance: FOLIC ACID
     Route: 064
  90. FOLIC ACID [Suspect]
     Active Substance: FOLIC ACID
     Route: 064
  91. FOLIC ACID [Suspect]
     Active Substance: FOLIC ACID
     Route: 064
  92. FOLIC ACID [Suspect]
     Active Substance: FOLIC ACID
     Route: 064
  93. FOLIC ACID [Suspect]
     Active Substance: FOLIC ACID
     Route: 064
  94. FOLIC ACID [Suspect]
     Active Substance: FOLIC ACID
     Route: 064
  95. FOLIC ACID [Suspect]
     Active Substance: FOLIC ACID
     Route: 064
  96. FOLIC ACID [Suspect]
     Active Substance: FOLIC ACID
     Route: 064
  97. FOLIC ACID [Suspect]
     Active Substance: FOLIC ACID
     Route: 064
  98. FOLIC ACID [Suspect]
     Active Substance: FOLIC ACID
     Route: 064
  99. FOLIC ACID [Suspect]
     Active Substance: FOLIC ACID
     Route: 064
  100. FOLIC ACID [Suspect]
     Active Substance: FOLIC ACID
     Route: 064
  101. FLUMETHASONE PIVALATE [Suspect]
     Active Substance: FLUMETHASONE PIVALATE
     Indication: Foetal exposure during pregnancy
     Route: 064
  102. FOSAMAX [Suspect]
     Active Substance: ALENDRONATE SODIUM
     Indication: Foetal exposure during pregnancy
     Route: 064
  103. FOSAMAX [Suspect]
     Active Substance: ALENDRONATE SODIUM
     Indication: Foetal exposure during pregnancy
     Route: 064
  104. FOSAMAX [Suspect]
     Active Substance: ALENDRONATE SODIUM
     Route: 064
  105. FOSAMAX [Suspect]
     Active Substance: ALENDRONATE SODIUM
     Route: 064
  106. FOSAMAX [Suspect]
     Active Substance: ALENDRONATE SODIUM
     Route: 064
  107. GOLD [Suspect]
     Active Substance: GOLD
     Indication: Foetal exposure during pregnancy
     Route: 064
  108. GOLIMUMAB [Suspect]
     Active Substance: GOLIMUMAB
     Indication: Foetal exposure during pregnancy
     Route: 064
  109. GOLIMUMAB [Suspect]
     Active Substance: GOLIMUMAB
     Route: 064
  110. HYDROCORTISONE [Suspect]
     Active Substance: HYDROCORTISONE
     Indication: Foetal exposure during pregnancy
     Route: 064
  111. HYDROCORTISONE [Suspect]
     Active Substance: HYDROCORTISONE
     Indication: Foetal exposure during pregnancy
  112. HUMIRA [Suspect]
     Active Substance: ADALIMUMAB
     Dosage: MATERNAL EXPOSURE DURING PREGNANCY: 40  MG, QMO
     Route: 064
  113. HUMIRA [Suspect]
     Active Substance: ADALIMUMAB
     Indication: Foetal exposure during pregnancy
     Route: 064
  114. HUMIRA [Suspect]
     Active Substance: ADALIMUMAB
     Route: 064
  115. HUMIRA [Suspect]
     Active Substance: ADALIMUMAB
     Route: 064
  116. HUMIRA [Suspect]
     Active Substance: ADALIMUMAB
     Route: 064
  117. HUMIRA [Suspect]
     Active Substance: ADALIMUMAB
     Route: 064
  118. HUMIRA [Suspect]
     Active Substance: ADALIMUMAB
     Route: 064
  119. HYDROXYCHLOROQUINE [Suspect]
     Active Substance: HYDROXYCHLOROQUINE
     Route: 064
  120. HYDROXYCHLOROQUINE [Suspect]
     Active Substance: HYDROXYCHLOROQUINE
     Route: 064
  121. HYDROXYCHLOROQUINE [Suspect]
     Active Substance: HYDROXYCHLOROQUINE
     Indication: Foetal exposure during pregnancy
     Route: 064
  122. HYDROXYCHLOROQUINE [Suspect]
     Active Substance: HYDROXYCHLOROQUINE
     Indication: Foetal exposure during pregnancy
     Route: 064
  123. HYDROXYCHLOROQUINE [Suspect]
     Active Substance: HYDROXYCHLOROQUINE
     Route: 064
  124. HYDROXYCHLOROQUINE [Suspect]
     Active Substance: HYDROXYCHLOROQUINE
     Route: 064
  125. HYDROXYCHLOROQUINE [Suspect]
     Active Substance: HYDROXYCHLOROQUINE
     Route: 064
  126. HYDROXYCHLOROQUINE [Suspect]
     Active Substance: HYDROXYCHLOROQUINE
     Route: 064
  127. HYDROXYCHLOROQUINE [Suspect]
     Active Substance: HYDROXYCHLOROQUINE
     Route: 064
  128. HYDROXYCHLOROQUINE [Suspect]
     Active Substance: HYDROXYCHLOROQUINE
     Route: 064
  129. HYDROXYCHLOROQUINE [Suspect]
     Active Substance: HYDROXYCHLOROQUINE
     Route: 064
  130. HYDROXYCHLOROQUINE [Suspect]
     Active Substance: HYDROXYCHLOROQUINE
     Route: 064
  131. HYDROXYCHLOROQUINE SULFATE [Suspect]
     Active Substance: HYDROXYCHLOROQUINE SULFATE
     Indication: Foetal exposure during pregnancy
     Route: 064
  132. HYDROXYCHLOROQUINE SULFATE [Suspect]
     Active Substance: HYDROXYCHLOROQUINE SULFATE
     Route: 064
  133. HYDROXYCHLOROQUINE SULFATE [Suspect]
     Active Substance: HYDROXYCHLOROQUINE SULFATE
     Route: 064
  134. HYDROCORTISONE [Suspect]
     Active Substance: HYDROCORTISONE
     Indication: Foetal exposure during pregnancy
     Route: 064
  135. LEFLUNOMIDE [Suspect]
     Active Substance: LEFLUNOMIDE
     Indication: Foetal exposure during pregnancy
     Route: 064
  136. LEFLUNOMIDE [Suspect]
     Active Substance: LEFLUNOMIDE
     Route: 064
  137. LEFLUNOMIDE [Suspect]
     Active Substance: LEFLUNOMIDE
     Indication: Foetal exposure during pregnancy
     Route: 064
  138. METHOTREXATE [Suspect]
     Active Substance: METHOTREXATE
     Indication: Foetal exposure during pregnancy
     Dosage: MATERNAL EXPOSURE DURING PREGNANCY: 15  MG, QW
     Route: 064
  139. METHOTREXATE [Suspect]
     Active Substance: METHOTREXATE
     Dosage: MATERNAL EXPOSURE DURING PREGNANCY: 20  MG, QW
     Route: 064
  140. METHOTREXATE [Suspect]
     Active Substance: METHOTREXATE
     Dosage: MATERNAL EXPOSURE DURING PREGNANCY: 25  MG, QW
     Route: 064
  141. METHOTREXATE [Suspect]
     Active Substance: METHOTREXATE
     Dosage: MATERNAL EXPOSURE DURING PREGNANCY: 25  MG, QW
     Route: 064
  142. METHOTREXATE [Suspect]
     Active Substance: METHOTREXATE
     Indication: Foetal exposure during pregnancy
     Route: 064
  143. METHOTREXATE [Suspect]
     Active Substance: METHOTREXATE
     Route: 064
  144. METHOTREXATE [Suspect]
     Active Substance: METHOTREXATE
     Route: 064
  145. METHOTREXATE [Suspect]
     Active Substance: METHOTREXATE
     Route: 064
  146. METHOTREXATE [Suspect]
     Active Substance: METHOTREXATE
     Route: 064
  147. METHOTREXATE [Suspect]
     Active Substance: METHOTREXATE
     Route: 064
  148. METHOTREXATE [Suspect]
     Active Substance: METHOTREXATE
     Route: 064
  149. METHOTREXATE [Suspect]
     Active Substance: METHOTREXATE
     Route: 064
  150. METHOTREXATE [Suspect]
     Active Substance: METHOTREXATE
     Route: 064
  151. METHOTREXATE [Suspect]
     Active Substance: METHOTREXATE
     Route: 064
  152. METHOTREXATE [Suspect]
     Active Substance: METHOTREXATE
     Route: 064
  153. METHOTREXATE [Suspect]
     Active Substance: METHOTREXATE
     Route: 064
  154. METHYLPREDNISOLONE [Suspect]
     Active Substance: METHYLPREDNISOLONE
     Indication: Foetal exposure during pregnancy
     Route: 064
  155. MINOCYCLINE [Suspect]
     Active Substance: MINOCYCLINE HYDROCHLORIDE
     Indication: Foetal exposure during pregnancy
     Route: 064
  156. MINOCYCLINE [Suspect]
     Active Substance: MINOCYCLINE HYDROCHLORIDE
     Route: 064
  157. MYOCHRYSINE [Suspect]
     Active Substance: GOLD SODIUM THIOMALATE
     Indication: Foetal exposure during pregnancy
     Route: 064
  158. ORENCIA [Suspect]
     Active Substance: ABATACEPT
     Dosage: MATERNAL EXPOSURE DURING PREGNANCY:  125 MG, QW
     Route: 064
  159. ORENCIA [Suspect]
     Active Substance: ABATACEPT
     Route: 064
  160. ORENCIA [Suspect]
     Active Substance: ABATACEPT
     Route: 064
  161. ORENCIA [Suspect]
     Active Substance: ABATACEPT
     Route: 064
  162. ORENCIA [Suspect]
     Active Substance: ABATACEPT
     Route: 064
  163. ORENCIA [Suspect]
     Active Substance: ABATACEPT
     Indication: Foetal exposure during pregnancy
     Route: 064
  164. ORENCIA [Suspect]
     Active Substance: ABATACEPT
     Route: 064
  165. OTEZLA [Suspect]
     Active Substance: APREMILAST
     Indication: Foetal exposure during pregnancy
     Route: 064
  166. OTEZLA [Suspect]
     Active Substance: APREMILAST
     Route: 064
  167. OTEZLA [Suspect]
     Active Substance: APREMILAST
     Route: 064
  168. OTEZLA [Suspect]
     Active Substance: APREMILAST
     Route: 064
  169. PERIOGARD [Suspect]
     Active Substance: CHLORHEXIDINE GLUCONATE
     Indication: Foetal exposure during pregnancy
     Route: 064
  170. PHTHALYLSULFATHIAZOLE [Suspect]
     Active Substance: PHTHALYLSULFATHIAZOLE
     Indication: Foetal exposure during pregnancy
     Route: 064
  171. PHTHALYLSULFATHIAZOLE [Suspect]
     Active Substance: PHTHALYLSULFATHIAZOLE
     Route: 064
  172. PHTHALYLSULFATHIAZOLE [Suspect]
     Active Substance: PHTHALYLSULFATHIAZOLE
     Route: 064
  173. PHTHALYLSULFATHIAZOLE [Suspect]
     Active Substance: PHTHALYLSULFATHIAZOLE
     Route: 064
  174. PHTHALYLSULFATHIAZOLE [Suspect]
     Active Substance: PHTHALYLSULFATHIAZOLE
     Route: 064
  175. PHTHALYLSULFATHIAZOLE [Suspect]
     Active Substance: PHTHALYLSULFATHIAZOLE
     Route: 064
  176. PHTHALYLSULFATHIAZOLE [Suspect]
     Active Substance: PHTHALYLSULFATHIAZOLE
     Route: 064
  177. PREDNISONE [Suspect]
     Active Substance: PREDNISONE
     Indication: Foetal exposure during pregnancy
     Route: 064
  178. PREDNISONE [Suspect]
     Active Substance: PREDNISONE
     Route: 064
  179. PREDNISONE [Suspect]
     Active Substance: PREDNISONE
     Route: 064
  180. PREDNISONE [Suspect]
     Active Substance: PREDNISONE
     Route: 064
  181. PREDNISONE [Suspect]
     Active Substance: PREDNISONE
     Route: 064
  182. PREDNISONE [Suspect]
     Active Substance: PREDNISONE
     Route: 064
  183. PREDNISONE [Suspect]
     Active Substance: PREDNISONE
     Route: 064
  184. PSEUDOEPHEDRINE [Suspect]
     Active Substance: PSEUDOEPHEDRINE
     Indication: Foetal exposure during pregnancy
     Route: 065
  185. PSEUDOEPHEDRINE HYDROCHLORIDE [Suspect]
     Active Substance: PSEUDOEPHEDRINE HYDROCHLORIDE
     Indication: Foetal exposure during pregnancy
     Route: 064
  186. PSEUDOEPHEDRINE HYDROCHLORIDE [Suspect]
     Active Substance: PSEUDOEPHEDRINE HYDROCHLORIDE
     Route: 064
  187. PSEUDOEPHEDRINE HYDROCHLORIDE [Suspect]
     Active Substance: PSEUDOEPHEDRINE HYDROCHLORIDE
     Route: 064
  188. RITUXIMAB [Suspect]
     Active Substance: RITUXIMAB
     Indication: Foetal exposure during pregnancy
     Route: 064
  189. RITUXIMAB [Suspect]
     Active Substance: RITUXIMAB
     Route: 064
  190. RITUXIMAB [Suspect]
     Active Substance: RITUXIMAB
     Route: 064
  191. RITUXIMAB [Suspect]
     Active Substance: RITUXIMAB
     Route: 064
  192. RITUXIMAB [Suspect]
     Active Substance: RITUXIMAB
     Indication: Foetal exposure during pregnancy
     Route: 064
  193. RITUXIMAB [Suspect]
     Active Substance: RITUXIMAB
     Route: 064
  194. RITUXIMAB [Suspect]
     Active Substance: RITUXIMAB
     Route: 064
  195. RITUXIMAB [Suspect]
     Active Substance: RITUXIMAB
     Route: 064
  196. CETIRIZINE HYDROCHLORIDE\PSEUDOEPHEDRINE HYDROCHLORIDE [Suspect]
     Active Substance: CETIRIZINE HYDROCHLORIDE\PSEUDOEPHEDRINE HYDROCHLORIDE
     Indication: Foetal exposure during pregnancy
     Route: 064
  197. REMICADE [Suspect]
     Active Substance: INFLIXIMAB
     Route: 064
  198. REMICADE [Suspect]
     Active Substance: INFLIXIMAB
     Route: 064
  199. REMICADE [Suspect]
     Active Substance: INFLIXIMAB
     Route: 064
  200. REMICADE [Suspect]
     Active Substance: INFLIXIMAB
     Indication: Foetal exposure during pregnancy
     Route: 064
  201. REMICADE [Suspect]
     Active Substance: INFLIXIMAB
     Route: 064
  202. REMICADE [Suspect]
     Active Substance: INFLIXIMAB
     Route: 064
  203. REMICADE [Suspect]
     Active Substance: INFLIXIMAB
     Route: 064
  204. REMICADE [Suspect]
     Active Substance: INFLIXIMAB
     Route: 064
  205. GOLD SODIUM THIOMALATE [Suspect]
     Active Substance: GOLD SODIUM THIOMALATE
     Indication: Foetal exposure during pregnancy
     Route: 064
  206. SULFASALAZINE [Suspect]
     Active Substance: SULFASALAZINE
     Indication: Foetal exposure during pregnancy
     Route: 064
  207. SULFASALAZINE [Suspect]
     Active Substance: SULFASALAZINE
     Route: 064
  208. SIMPONI [Suspect]
     Active Substance: GOLIMUMAB
     Route: 064
  209. SIMPONI [Suspect]
     Active Substance: GOLIMUMAB
     Indication: Foetal exposure during pregnancy
     Route: 064
  210. SIMPONI [Suspect]
     Active Substance: GOLIMUMAB
     Route: 064
  211. SIMPONI [Suspect]
     Active Substance: GOLIMUMAB
     Route: 064
  212. SIRUKUMAB [Suspect]
     Active Substance: SIRUKUMAB
     Indication: Foetal exposure during pregnancy
     Route: 064
  213. SOLU-MEDROL [Suspect]
     Active Substance: METHYLPREDNISOLONE SODIUM SUCCINATE
     Indication: Foetal exposure during pregnancy
     Route: 064
  214. STELARA [Suspect]
     Active Substance: USTEKINUMAB
     Indication: Foetal exposure during pregnancy
     Route: 064
  215. STELARA [Suspect]
     Active Substance: USTEKINUMAB
     Route: 064
  216. SULFAMETHOXAZOLE AND TRIMETHOPRIM [Suspect]
     Active Substance: SULFAMETHOXAZOLE\TRIMETHOPRIM
     Indication: Foetal exposure during pregnancy
     Route: 064
  217. SULFASALAZINE [Suspect]
     Active Substance: SULFASALAZINE
     Route: 064
  218. SULFASALAZINE [Suspect]
     Active Substance: SULFASALAZINE
     Indication: Foetal exposure during pregnancy
     Route: 064
  219. SULFASALAZINE [Suspect]
     Active Substance: SULFASALAZINE
     Indication: Foetal exposure during pregnancy
     Route: 064
  220. SULFASALAZINE [Suspect]
     Active Substance: SULFASALAZINE
     Route: 064
  221. SULFASALAZINE [Suspect]
     Active Substance: SULFASALAZINE
     Route: 064
  222. SULFASALAZINE [Suspect]
     Active Substance: SULFASALAZINE
     Route: 064
  223. SULFASALAZINE [Suspect]
     Active Substance: SULFASALAZINE
     Route: 064
  224. SULFASALAZINE [Suspect]
     Active Substance: SULFASALAZINE
     Route: 064
  225. SULFASALAZINE [Suspect]
     Active Substance: SULFASALAZINE
     Route: 064
  226. SULFASALAZINE [Suspect]
     Active Substance: SULFASALAZINE
     Route: 064
  227. SULFASALAZINE [Suspect]
     Active Substance: SULFASALAZINE
     Route: 064
  228. SULFASALAZINE [Suspect]
     Active Substance: SULFASALAZINE
     Route: 064
  229. SULFASALAZINE [Suspect]
     Active Substance: SULFASALAZINE
     Route: 064
  230. SULFASALAZINE [Suspect]
     Active Substance: SULFASALAZINE
     Route: 064
  231. TRAMADOL HYDROCHLORIDE [Suspect]
     Active Substance: TRAMADOL HYDROCHLORIDE
     Indication: Foetal exposure during pregnancy
     Route: 064
  232. TOCILIZUMAB [Suspect]
     Active Substance: TOCILIZUMAB
     Indication: Foetal exposure during pregnancy
     Route: 064
  233. TOCILIZUMAB [Suspect]
     Active Substance: TOCILIZUMAB
     Route: 064
  234. TOCILIZUMAB [Suspect]
     Active Substance: TOCILIZUMAB
     Route: 064
  235. VITAMIN D3 [Suspect]
     Active Substance: CHOLECALCIFEROL
     Indication: Foetal exposure during pregnancy
     Route: 064
  236. VITAMIN D3 [Suspect]
     Active Substance: CHOLECALCIFEROL
     Route: 064
  237. VITAMIN D3 [Suspect]
     Active Substance: CHOLECALCIFEROL
     Route: 064
  238. PREDNISONE [Suspect]
     Active Substance: PREDNISONE
     Indication: Foetal exposure during pregnancy
     Route: 064
  239. XELJANZ [Suspect]
     Active Substance: TOFACITINIB CITRATE
     Route: 064
  240. XELJANZ [Suspect]
     Active Substance: TOFACITINIB CITRATE
     Indication: Foetal exposure during pregnancy
     Route: 064
  241. XELJANZ [Suspect]
     Active Substance: TOFACITINIB CITRATE
     Route: 064
  242. XELJANZ [Suspect]
     Active Substance: TOFACITINIB CITRATE
     Route: 064
  243. XELJANZ [Suspect]
     Active Substance: TOFACITINIB CITRATE
     Route: 064
  244. CAFFEINE CITRATE [Concomitant]
     Active Substance: CAFFEINE CITRATE
     Indication: Foetal exposure during pregnancy
     Route: 064
  245. CALCIUM GLUCONATE [Concomitant]
     Active Substance: CALCIUM GLUCONATE
     Indication: Foetal exposure during pregnancy
     Route: 064
  246. CODEINE [Concomitant]
     Active Substance: CODEINE
     Indication: Foetal exposure during pregnancy
     Route: 064
  247. DESOGESTREL AND ETHINYL ESTRADIOL [Concomitant]
     Active Substance: DESOGESTREL\ETHINYL ESTRADIOL
     Indication: Foetal exposure during pregnancy
     Route: 064
  248. DICLOFENAC POTASSIUM [Concomitant]
     Active Substance: DICLOFENAC POTASSIUM
     Indication: Foetal exposure during pregnancy
     Route: 064
  249. DICLOFENAC POTASSIUM [Concomitant]
     Active Substance: DICLOFENAC POTASSIUM
     Route: 064
  250. IBUPROFEN [Concomitant]
     Active Substance: IBUPROFEN
     Indication: Foetal exposure during pregnancy
     Route: 064
  251. LISINOPRIL [Concomitant]
     Active Substance: LISINOPRIL
     Indication: Foetal exposure during pregnancy
     Route: 064
  252. NAPROXEN [Concomitant]
     Active Substance: NAPROXEN
     Indication: Foetal exposure during pregnancy
     Route: 064
  253. PANTOPRAZOLE [Concomitant]
     Active Substance: PANTOPRAZOLE
     Indication: Foetal exposure during pregnancy
     Route: 064
  254. QUETIAPINE FUMARATE [Concomitant]
     Active Substance: QUETIAPINE FUMARATE
     Indication: Foetal exposure during pregnancy
     Route: 064
  255. RAMIPRIL [Concomitant]
     Active Substance: RAMIPRIL
     Indication: Foetal exposure during pregnancy
     Route: 064
  256. TOFACITINIB CITRATE [Concomitant]
     Active Substance: TOFACITINIB CITRATE
     Indication: Foetal exposure during pregnancy
     Route: 064

REACTIONS (3)
  - Death neonatal [Fatal]
  - Congenital anomaly [Not Recovered/Not Resolved]
  - Foetal exposure during pregnancy [Not Recovered/Not Resolved]
